FAERS Safety Report 14227448 (Version 2)
Quarter: 2018Q1

REPORT INFORMATION
  Report Type: Spontaneous
  Country: FR (occurrence: FR)
  Receive Date: 20171127
  Receipt Date: 20180119
  Transmission Date: 20180508
  Serious: Yes (Other)
  Sender: FDA-Public Use
  Company Number: FR-PFIZER INC-2017506412

PATIENT
  Age: 27 Year
  Sex: Female

DRUGS (2)
  1. PROSTINE E2 [Suspect]
     Active Substance: DINOPROSTONE
     Indication: INDUCED LABOUR
     Dosage: UNK
     Route: 067
     Dates: start: 2004
  2. AUGMENTIN [Suspect]
     Active Substance: AMOXICILLIN\CLAVULANATE POTASSIUM
     Indication: STREPTOCOCCAL INFECTION
     Dosage: UNK
     Route: 042
     Dates: start: 20040322, end: 20040322

REACTIONS (1)
  - Bronchospasm [Recovered/Resolved]

NARRATIVE: CASE EVENT DATE: 20040322
